FAERS Safety Report 4578899-8 (Version None)
Quarter: 2005Q1

REPORT INFORMATION
  Report Type: 
  Country: None (occurrence: None)
  Receive Date: 20050211
  Receipt Date: 20050120
  Transmission Date: 20050727
  Serious: Yes (Hospitalization, Other)
  Sender: FDA-Public Use
  Company Number: DE-ABBOTT-05P-062-0287524-00

PATIENT
  Sex: Male

DRUGS (4)
  1. ERGENYL CHRONO TABLETS [Suspect]
     Indication: CONVULSION
     Route: 048
     Dates: start: 20050108, end: 20050110
  2. ERGENYL CHRONO TABLETS [Suspect]
     Indication: EPILEPSY
  3. DIAZEPAM [Suspect]
     Indication: DRUG USE FOR UNKNOWN INDICATION
     Route: 048
     Dates: start: 20050108
  4. ESOMEPRAZOLE [Suspect]
     Indication: DRUG USE FOR UNKNOWN INDICATION
     Route: 048
     Dates: start: 20050108

REACTIONS (5)
  - ALANINE AMINOTRANSFERASE INCREASED [None]
  - ASPARTATE AMINOTRANSFERASE INCREASED [None]
  - BLOOD LACTATE DEHYDROGENASE INCREASED [None]
  - CONVULSION [None]
  - RHABDOMYOLYSIS [None]
